FAERS Safety Report 19967826 (Version 1)
Quarter: 2021Q4

REPORT INFORMATION
  Report Type: Spontaneous
  Country: DE (occurrence: DE)
  Receive Date: 20211019
  Receipt Date: 20211019
  Transmission Date: 20220303
  Serious: Yes (Other)
  Sender: FDA-Public Use
  Company Number: DE-SUN PHARMACEUTICAL INDUSTRIES LTD-2021RR-314610

PATIENT
  Age: 59 Year
  Sex: Male

DRUGS (7)
  1. IRINOTECAN [Suspect]
     Active Substance: IRINOTECAN
     Indication: Cholangiocarcinoma
     Dosage: UNK
     Route: 065
  2. GEMCITABINE [Suspect]
     Active Substance: GEMCITABINE
     Indication: Cholangiocarcinoma
     Dosage: UNK
     Route: 065
  3. CISPLATIN [Suspect]
     Active Substance: CISPLATIN
     Indication: Cholangiocarcinoma
     Dosage: UNK
     Route: 065
  4. FLUOROURACIL [Suspect]
     Active Substance: FLUOROURACIL
     Indication: Cholangiocarcinoma
     Dosage: UNK
     Route: 065
  5. LEUCOVORIN [Suspect]
     Active Substance: LEUCOVORIN
     Indication: Cholangiocarcinoma
     Dosage: UNK
     Route: 065
  6. LENVATINIB [Suspect]
     Active Substance: LENVATINIB
     Indication: Cholangiocarcinoma
     Dosage: 10 MILLIGRAM, DAILY
     Route: 048
  7. PEMBROLIZUMAB [Suspect]
     Active Substance: PEMBROLIZUMAB
     Indication: Cholangiocarcinoma
     Dosage: 200 MILLIGRAM, T 200 MG I.V. EVERY 3 WEEKS
     Route: 042

REACTIONS (4)
  - Disease progression [Unknown]
  - Off label use [Unknown]
  - Pruritus [Recovered/Resolved]
  - Hypertension [Unknown]
